FAERS Safety Report 23768205 (Version 4)
Quarter: 2024Q3

REPORT INFORMATION
  Report Type: Report from Study
  Country: GR (occurrence: GR)
  Receive Date: 20240422
  Receipt Date: 20240902
  Transmission Date: 20241016
  Serious: No
  Sender: UCB
  Company Number: GR-UCBSA-2024019394

PATIENT
  Age: 25 Year
  Sex: Male
  Weight: 90 kg

DRUGS (4)
  1. BRIVARACETAM [Suspect]
     Active Substance: BRIVARACETAM
     Indication: Partial seizures
     Dosage: UNK UNK, 2X/DAY (BID)
     Route: 048
     Dates: start: 20230129
  2. BRIVARACETAM [Suspect]
     Active Substance: BRIVARACETAM
     Dosage: 150 MILLIGRAM, 2X/DAY (BID) (300 MG/DAY.)
     Route: 048
     Dates: start: 20231115
  3. VIMPAT [Concomitant]
     Active Substance: LACOSAMIDE
     Indication: Epilepsy
     Dosage: 200 MILLIGRAM, 2X/DAY (BID)
     Route: 048
     Dates: start: 20230718
  4. TRILEPTAL [Concomitant]
     Active Substance: OXCARBAZEPINE
     Indication: Epilepsy
     Dosage: 900 MILLIGRAM, 3X/DAY (TID)
     Route: 048
     Dates: start: 2008

REACTIONS (1)
  - Overdose [Unknown]

NARRATIVE: CASE EVENT DATE: 20231115
